FAERS Safety Report 7335496-9 (Version None)
Quarter: 2011Q1

REPORT INFORMATION
  Report Type: 
  Country: None (occurrence: None)
  Receive Date: 20110301
  Receipt Date: 20110301
  Transmission Date: 20110831
  Serious: Yes (Other)
  Sender: FDA-Public Use
  Company Number: None

PATIENT
  Age: 39 Year
  Sex: Female
  Weight: 38.1022 kg

DRUGS (1)
  1. KENALOG [Suspect]
     Indication: LOWER RESPIRATORY TRACT INFECTION
     Dosage: 10MG ONCE INTRA-ARTICULAR
     Route: 014
     Dates: start: 20101116, end: 20101116

REACTIONS (2)
  - MUSCLE ATROPHY [None]
  - INJECTION SITE PAIN [None]
